FAERS Safety Report 5731013-5 (Version None)
Quarter: 2008Q2

REPORT INFORMATION
  Report Type: 
  Country: None (occurrence: None)
  Receive Date: 20080505
  Receipt Date: 20080429
  Transmission Date: 20081010
  Serious: Yes (Hospitalization, Disabling)
  Sender: FDA-Public Use
  Company Number: 2008SP000888

PATIENT
  Age: 37 Year
  Sex: Female
  Weight: 97.0698 kg

DRUGS (15)
  1. PEG-INTRON [Suspect]
     Indication: HEPATITIS C
     Dosage: 150 MCG; SC
     Route: 058
     Dates: start: 20071110
  2. RIBAVIRIN [Suspect]
     Indication: HEPATITIS C
     Dosage: 1200 MG; PO
     Route: 048
     Dates: start: 20071110
  3. NITROGLYCERIN [Concomitant]
  4. LASIX [Concomitant]
  5. MS CONTIN [Concomitant]
  6. MORPHINE SULFATE [Concomitant]
  7. METOPROLOL TARTRATE [Concomitant]
  8. PREDNISOLONE [Concomitant]
  9. MOM [Concomitant]
  10. PRO-AIR [Concomitant]
  11. ALBUTEROL [Concomitant]
  12. PRILOSEC [Concomitant]
  13. LUNESTA [Concomitant]
  14. PREDNISONE TAB [Concomitant]
  15. PHENERGAN [Concomitant]

REACTIONS (11)
  - CHEST PAIN [None]
  - ERYTHEMA [None]
  - FALL [None]
  - GAIT DISTURBANCE [None]
  - INJECTION SITE IRRITATION [None]
  - OEDEMA PERIPHERAL [None]
  - PITTING OEDEMA [None]
  - PURULENCE [None]
  - SKIN ULCER [None]
  - SWELLING [None]
  - WOUND DRAINAGE [None]
